FAERS Safety Report 5724693-1 (Version None)
Quarter: 2008Q2

REPORT INFORMATION
  Report Type: 
  Country: None (occurrence: None)
  Receive Date: 20080430
  Receipt Date: 20080430
  Transmission Date: 20081010
  Serious: No
  Sender: FDA-Public Use
  Company Number: None

PATIENT
  Age: 46 Year
  Sex: Female
  Weight: 87.9978 kg

DRUGS (1)
  1. BUPROPION HCL [Suspect]
     Indication: DEPRESSION
     Dosage: 1 TABLET DAILY PO  (DURATION: A LITTLE OVER A MONTH)
     Route: 048
     Dates: start: 20080301, end: 20080402

REACTIONS (11)
  - ANXIETY [None]
  - CONFUSIONAL STATE [None]
  - DEPRESSION [None]
  - DIARRHOEA [None]
  - FEELING ABNORMAL [None]
  - MALAISE [None]
  - PYREXIA [None]
  - RASH [None]
  - SKIN IRRITATION [None]
  - VIRAL INFECTION [None]
  - VOMITING [None]
